FAERS Safety Report 10469707 (Version 1)
Quarter: 2014Q3

REPORT INFORMATION
  Report Type: Spontaneous
  Country: US (occurrence: US)
  Receive Date: 20140923
  Receipt Date: 20140923
  Transmission Date: 20150326
  Serious: Yes (Hospitalization)
  Sender: FDA-Public Use
  Company Number: US-JNJFOC-20140915239

PATIENT
  Age: 59 Year
  Sex: Female

DRUGS (2)
  1. XARELTO [Suspect]
     Active Substance: RIVAROXABAN
     Indication: THROMBOSIS PROPHYLAXIS
     Route: 048
     Dates: start: 2014
  2. DYAZIDE [Concomitant]
     Active Substance: HYDROCHLOROTHIAZIDE\TRIAMTERENE
     Indication: HYPERTENSION
     Route: 065

REACTIONS (4)
  - Transient ischaemic attack [Recovered/Resolved]
  - Atrial thrombosis [Unknown]
  - Dizziness [Unknown]
  - Cardiac valve vegetation [Unknown]

NARRATIVE: CASE EVENT DATE: 201408
